FAERS Safety Report 7339459-9 (Version None)
Quarter: 2011Q1

REPORT INFORMATION
  Report Type: 
  Country: None (occurrence: None)
  Receive Date: 20110308
  Receipt Date: 20110105
  Transmission Date: 20110831
  Serious: No
  Sender: FDA-Public Use
  Company Number: US-AMGEN-USASP2011000715

PATIENT
  Age: 55 Year
  Sex: Female

DRUGS (1)
  1. PROLIA [Suspect]
     Indication: OSTEOPOROSIS POSTMENOPAUSAL
     Dates: start: 20101228

REACTIONS (8)
  - PAROTID GLAND ENLARGEMENT [None]
  - BACK PAIN [None]
  - UPPER RESPIRATORY TRACT INFECTION [None]
  - LYMPH NODE PAIN [None]
  - PYREXIA [None]
  - HYPOAESTHESIA [None]
  - GINGIVAL SWELLING [None]
  - MUSCLE SPASMS [None]
